FAERS Safety Report 5156705-0 (Version None)
Quarter: 2006Q4

REPORT INFORMATION
  Report Type: 
  Country: None (occurrence: None)
  Receive Date: 20061115
  Receipt Date: 20061102
  Transmission Date: 20070319
  Serious: Yes (Death, Hospitalization, Other)
  Sender: FDA-Public Use
  Company Number: 2006018675

PATIENT
  Age: 51 Year
  Sex: Male
  Weight: 77.1115 kg

DRUGS (3)
  1. BEXTRA [Suspect]
     Indication: DRUG USE FOR UNKNOWN INDICATION
  2. CELEBREX [Suspect]
     Indication: DRUG USE FOR UNKNOWN INDICATION
  3. VIOXX [Suspect]
     Dates: start: 20001201, end: 20010429

REACTIONS (3)
  - ARTERIAL OCCLUSIVE DISEASE [None]
  - ISCHAEMIC STROKE [None]
  - MYOCARDIAL INFARCTION [None]
